FAERS Safety Report 26069712 (Version 1)
Quarter: 2025Q4

REPORT INFORMATION
  Report Type: Spontaneous
  Country: US (occurrence: US)
  Receive Date: 20251120
  Receipt Date: 20251120
  Transmission Date: 20260118
  Serious: No
  Sender: CATALYST PHARMA
  Company Number: US-CATALYST PHARMACEUTICALS-US-CATA-25-01163

PATIENT
  Age: 8 Year
  Sex: Male
  Weight: 39.274 kg

DRUGS (5)
  1. AGAMREE [Suspect]
     Active Substance: VAMOROLONE
     Indication: Duchenne muscular dystrophy
     Dosage: 5 ML DAILY
     Route: 048
     Dates: start: 20240402
  2. AGAMREE [Suspect]
     Active Substance: VAMOROLONE
     Dosage: 6 ML DAILY
     Route: 048
     Dates: start: 202505, end: 202507
  3. AGAMREE [Suspect]
     Active Substance: VAMOROLONE
     Dosage: 5 ML DAILY
     Route: 048
     Dates: start: 202507
  4. CETIRIZINE [Concomitant]
     Active Substance: CETIRIZINE HYDROCHLORIDE
     Indication: Hypersensitivity
     Dosage: 5 ML AS NEEDED
     Route: 065
  5. VITAMIN D3 [Concomitant]
     Active Substance: CHOLECALCIFEROL
     Indication: Hypovitaminosis
     Dosage: 5000 UNITS ONCE A DAY
     Route: 065

REACTIONS (1)
  - Behaviour disorder [Recovering/Resolving]

NARRATIVE: CASE EVENT DATE: 20250501
